FAERS Safety Report 5086863-8 (Version None)
Quarter: 2006Q3

REPORT INFORMATION
  Report Type: 
  Country: None (occurrence: None)
  Receive Date: 20060818
  Receipt Date: 20060801
  Transmission Date: 20061208
  Serious: Yes (Other)
  Sender: FDA-Public Use
  Company Number: CHPA2006US07550

PATIENT
  Sex: Female

DRUGS (6)
  1. TRANSDERM SCOP [Suspect]
     Dosage: 1.5 MG TRANSDERMAL ; 1.5 MG Q72H TRANSDERMAL ; 1. 5 MG TRANSDERMAL
     Route: 062
     Dates: start: 20060718, end: 20060723
  2. TRANSDERM SCOP [Suspect]
     Dosage: 1.5 MG TRANSDERMAL ; 1.5 MG Q72H TRANSDERMAL ; 1. 5 MG TRANSDERMAL
     Route: 062
     Dates: start: 20060723, end: 20060729
  3. TRANSDERM SCOP [Suspect]
     Dosage: 1.5 MG TRANSDERMAL ; 1.5 MG Q72H TRANSDERMAL ; 1. 5 MG TRANSDERMAL
     Route: 062
     Dates: start: 20040601
  4. DOXEPIN [Concomitant]
  5. BONINE (MECLOZINE HYDROCHLORIDE) [Concomitant]
  6. ANTIASTHMATICS (NO INGREDIENTS/SUBSTANCES) [Concomitant]

REACTIONS (3)
  - HEART RATE DECREASED [None]
  - RASH [None]
  - TRANSIENT ISCHAEMIC ATTACK [None]
